FAERS Safety Report 21631610 (Version 1)
Quarter: 2022Q4

REPORT INFORMATION
  Report Type: Other
  Country: MX (occurrence: None)
  Receive Date: 20221123
  Receipt Date: 20221123
  Transmission Date: 20230113
  Serious: Yes (Other)
  Sender: FDA-Public Use
  Company Number: MX-ROCHE-3222941

PATIENT
  Age: 28 Year
  Sex: Female

DRUGS (2)
  1. OCREVUS [Suspect]
     Active Substance: OCRELIZUMAB
     Indication: Multiple sclerosis
     Dosage: OCRELIZUMAB VIAL 300MG/10ML (30MG/ML) AND THEN 600 MG ONCE IN SIX MONTHS
     Route: 042
     Dates: start: 20190818
  2. OCREVUS [Suspect]
     Active Substance: OCRELIZUMAB
     Dosage: OCRELIZUMAB VIAL 300MG/10ML (30MG/ML)
     Route: 042

REACTIONS (3)
  - Throat tightness [Unknown]
  - Sunburn [Not Recovered/Not Resolved]
  - Off label use [Unknown]

NARRATIVE: CASE EVENT DATE: 20221118
